FAERS Safety Report 18548300 (Version 1)
Quarter: 2020Q4

REPORT INFORMATION
  Report Type: Spontaneous
  Country: HR (occurrence: HR)
  Receive Date: 20201125
  Receipt Date: 20201125
  Transmission Date: 20210114
  Serious: Yes (Hospitalization, Other)
  Sender: FDA-Public Use
  Company Number: NVSC2011HR000448

PATIENT
  Age: 31 Year
  Sex: Female

DRUGS (43)
  1. BACLOFEN. [Suspect]
     Active Substance: BACLOFEN
     Dosage: 25 MG, TID
     Route: 065
     Dates: start: 200805
  2. GABAPENTIN. [Suspect]
     Active Substance: GABAPENTIN
     Indication: MENTAL DISORDER
     Dosage: 300 MG
     Route: 065
     Dates: start: 200904
  3. GABAPENTIN. [Suspect]
     Active Substance: GABAPENTIN
     Dosage: 300 MG, QD
     Route: 065
     Dates: start: 200904
  4. OXYCODONE HYDROCHLORIDE. [Suspect]
     Active Substance: OXYCODONE HYDROCHLORIDE
     Dosage: 10 MG, PP
     Route: 065
     Dates: start: 201003
  5. BUPRENORPHINE. [Suspect]
     Active Substance: BUPRENORPHINE
     Indication: BRADYPHRENIA
     Dosage: 70 UG
     Route: 065
     Dates: start: 200904
  6. BACLOFEN. [Suspect]
     Active Substance: BACLOFEN
     Dosage: 25 MG, TID
     Route: 065
     Dates: start: 200904
  7. BACLOFEN. [Suspect]
     Active Substance: BACLOFEN
     Dosage: 10 MG (3X10 MG)
     Route: 065
     Dates: start: 200709
  8. DIAZEPAM. [Suspect]
     Active Substance: DIAZEPAM
     Indication: PAIN
     Dosage: 5 UG, QD
     Route: 065
     Dates: start: 200709
  9. PARACETAMOL,TRAMADOL [Suspect]
     Active Substance: ACETAMINOPHEN\TRAMADOL
     Dosage: 2 DF, TID (TRAMADOL 37.5MG/PARACETAMOL 325MG)
     Route: 065
     Dates: start: 200904
  10. BUPRENORPHINE. [Suspect]
     Active Substance: BUPRENORPHINE
     Dosage: 70 MCG, Q72H
     Route: 065
     Dates: start: 200904
  11. PIROXICAM. [Suspect]
     Active Substance: PIROXICAM
     Indication: PAIN
  12. CARBAMAZEPINE. [Interacting]
     Active Substance: CARBAMAZEPINE
     Dosage: 600 MG (3X200MG)
     Route: 065
     Dates: start: 200709
  13. PANTOPRAZOLE SODIUM. [Suspect]
     Active Substance: PANTOPRAZOLE SODIUM
     Indication: PRODUCT USED FOR UNKNOWN INDICATION
     Dosage: 20 MG
     Route: 065
     Dates: start: 200904
  14. SERTRALINE [Suspect]
     Active Substance: SERTRALINE HYDROCHLORIDE
     Dosage: 1 DF
     Route: 065
  15. LEVOTHYROXINE. [Suspect]
     Active Substance: LEVOTHYROXINE
     Indication: QUADRIPARESIS
     Dosage: 50 UG
     Route: 065
  16. NEUROBION FORTE [Suspect]
     Active Substance: CYANOCOBALAMIN\PYRIDOXINE HYDROCHLORIDE\THIAMINE DISULFIDE
     Indication: ASTHENIA
     Dosage: UNK
     Route: 065
     Dates: start: 200805
  17. PREGABALIN. [Suspect]
     Active Substance: PREGABALIN
     Dosage: 300 MG
     Route: 065
     Dates: start: 201003
  18. PREGABALIN. [Suspect]
     Active Substance: PREGABALIN
     Dosage: 600 MG (2X300 MG)
     Route: 065
     Dates: start: 201003
  19. PARACETAMOL,TRAMADOL [Suspect]
     Active Substance: ACETAMINOPHEN\TRAMADOL
     Indication: PAIN
     Dosage: 2 DF, TID (TRAMADOL 37.5MG/PARACETAMOL 325MG)
     Route: 065
     Dates: start: 200709
  20. OXYCODONE HYDROCHLORIDE. [Suspect]
     Active Substance: OXYCODONE HYDROCHLORIDE
     Dosage: 13 MG
     Route: 065
  21. IBUPROFEN. [Suspect]
     Active Substance: IBUPROFEN
     Indication: PAIN
     Dosage: 400 MG
     Route: 065
  22. SERTRALINE [Suspect]
     Active Substance: SERTRALINE HYDROCHLORIDE
     Indication: PAIN
     Dosage: 50 MG, QD
     Route: 065
     Dates: start: 200904
  23. FEXOFENADINE [Suspect]
     Active Substance: FEXOFENADINE HYDROCHLORIDE
     Indication: HEADACHE
     Dosage: 180 MG
     Route: 065
  24. BACLOFEN. [Suspect]
     Active Substance: BACLOFEN
     Dosage: 25 MG, TID
     Route: 065
     Dates: start: 201003
  25. GABAPENTIN. [Suspect]
     Active Substance: GABAPENTIN
     Dosage: 900 MG, TID
     Route: 065
  26. ESOMEPRAZOLE. [Suspect]
     Active Substance: ESOMEPRAZOLE MAGNESIUM
     Indication: ASTHENIA
     Dosage: 20 MG, BID
     Route: 065
     Dates: start: 201003
  27. RANITIDINE. [Suspect]
     Active Substance: RANITIDINE
     Indication: PRODUCT USED FOR UNKNOWN INDICATION
     Dosage: UNK
     Route: 065
  28. PIROXICAM. [Suspect]
     Active Substance: PIROXICAM
     Indication: MUSCULOSKELETAL STIFFNESS
     Dosage: 20 MG
     Route: 065
     Dates: start: 200709
  29. LEVOTHYROXINE. [Suspect]
     Active Substance: LEVOTHYROXINE
     Indication: PAIN
     Dosage: 75 UG
     Route: 065
  30. GINKGO BILOBA [Suspect]
     Active Substance: GINKGO
     Indication: RASH
     Dosage: 120 MG
     Route: 065
     Dates: start: 201003
  31. ALPRAZOLAM. [Concomitant]
     Active Substance: ALPRAZOLAM
     Indication: PERSISTENT DEPRESSIVE DISORDER
     Dosage: UNK
     Route: 065
     Dates: start: 200805
  32. BACLOFEN. [Suspect]
     Active Substance: BACLOFEN
     Indication: PAIN
     Dosage: 10 MG, TID
     Route: 065
     Dates: start: 200709
  33. BACLOFEN. [Suspect]
     Active Substance: BACLOFEN
     Dosage: 25 MG (3X25 MG)
     Route: 065
     Dates: start: 200805
  34. FENTANYL. [Suspect]
     Active Substance: FENTANYL
     Indication: PAIN
     Dosage: 100 UG/72 H
     Route: 062
     Dates: start: 201003
  35. GABAPENTIN. [Suspect]
     Active Substance: GABAPENTIN
     Dosage: 900 MG (3X300 MG)
     Route: 065
  36. PARACETAMOL,TRAMADOL [Suspect]
     Active Substance: ACETAMINOPHEN\TRAMADOL
     Dosage: 2 DF, TID (TRAMADOL 37.5MG/PARACETAMOL 325MG)
     Route: 065
     Dates: start: 200805
  37. OXYCODONE HYDROCHLORIDE. [Suspect]
     Active Substance: OXYCODONE HYDROCHLORIDE
     Indication: PAIN
     Dosage: 10 MG, TID
     Route: 065
     Dates: start: 200904
  38. SERTRALINE [Suspect]
     Active Substance: SERTRALINE HYDROCHLORIDE
     Indication: HEADACHE
     Dosage: 50 MG, QD
     Route: 065
     Dates: start: 200805
  39. GINKGO BILOBA [Suspect]
     Active Substance: GINKGO
     Indication: PAIN
  40. CARBAMAZEPINE. [Suspect]
     Active Substance: CARBAMAZEPINE
     Indication: PAIN
     Dosage: 200 MG, TID
     Route: 065
     Dates: start: 200709
  41. FENTANYL. [Suspect]
     Active Substance: FENTANYL
     Dosage: 100 MG
     Route: 062
  42. PREGABALIN. [Suspect]
     Active Substance: PREGABALIN
     Indication: PAIN
     Dosage: 300 MG, BID
     Route: 065
     Dates: start: 201003
  43. NEUROBION FORTE [Suspect]
     Active Substance: CYANOCOBALAMIN\PYRIDOXINE HYDROCHLORIDE\THIAMINE DISULFIDE
     Indication: PAIN

REACTIONS (35)
  - Diplopia [Unknown]
  - Quadriparesis [Unknown]
  - Headache [Unknown]
  - Drug interaction [Unknown]
  - Anxiety [Unknown]
  - Sedation [Unknown]
  - Euphoric mood [Unknown]
  - Condition aggravated [Unknown]
  - Oedema [Unknown]
  - Schizophrenia [Unknown]
  - Dizziness [Unknown]
  - Musculoskeletal stiffness [Unknown]
  - Cognitive disorder [Unknown]
  - Conversion disorder [Unknown]
  - Depression [Unknown]
  - Psychomotor skills impaired [Unknown]
  - Fatigue [Unknown]
  - Pruritus [Unknown]
  - Nausea [Unknown]
  - Syncope [Unknown]
  - Pain [Unknown]
  - Erythema [Unknown]
  - Constipation [Unknown]
  - Disturbance in attention [Unknown]
  - Neurosis [Unknown]
  - Asthenia [Unknown]
  - Persistent depressive disorder [Unknown]
  - Feeling abnormal [Unknown]
  - Confusional state [Unknown]
  - Sensory disturbance [Unknown]
  - Ataxia [Unknown]
  - Vomiting [Unknown]
  - Loss of consciousness [Unknown]
  - Gastrointestinal motility disorder [Unknown]
  - Drug ineffective [Unknown]
